FAERS Safety Report 4790108-3 (Version None)
Quarter: 2005Q4

REPORT INFORMATION
  Report Type: 
  Country: None (occurrence: None)
  Receive Date: 20051005
  Receipt Date: 20051005
  Transmission Date: 20060501
  Serious: No
  Sender: FDA-Public Use
  Company Number: None

PATIENT
  Sex: Female
  Weight: 63.5036 kg

DRUGS (2)
  1. DURAGESIC-100 [Suspect]
     Indication: PAIN
     Dosage: 100 MG 2 Q 2-3D
  2. DURAGESIC-100 [Suspect]
     Indication: RADICULOPATHY
     Dosage: 100 MG 2 Q 2-3D

REACTIONS (2)
  - DRUG EFFECT DECREASED [None]
  - PAIN [None]
